FAERS Safety Report 24083446 (Version 1)
Quarter: 2024Q3

REPORT INFORMATION
  Report Type: Spontaneous
  Country: PT (occurrence: PT)
  Receive Date: 20240712
  Receipt Date: 20240712
  Transmission Date: 20241016
  Serious: Yes (Life-Threatening, Hospitalization, Other)
  Sender: AUROBINDO
  Company Number: PT-MLMSERVICE-20240626-PI112609-00057-1

PATIENT
  Age: 8 Decade
  Sex: Male

DRUGS (17)
  1. ATORVASTATIN [Interacting]
     Active Substance: ATORVASTATIN
     Indication: Product used for unknown indication
     Dosage: 40 MILLIGRAM, ONCE A DAY
     Route: 065
  2. BUPROPION [Interacting]
     Active Substance: BUPROPION
     Indication: Weight decreased
     Dosage: UNK
     Route: 048
  3. LORAZEPAM [Interacting]
     Active Substance: LORAZEPAM
     Indication: Product used for unknown indication
     Dosage: 2.5 MILLIGRAM, ONCE A DAY (0.137 MG)
     Route: 065
  4. TRAZODONE [Interacting]
     Active Substance: TRAZODONE HYDROCHLORIDE
     Indication: Product used for unknown indication
     Dosage: 300 MILLIGRAM, ONCE A DAY
     Route: 065
  5. QUETIAPINE [Interacting]
     Active Substance: QUETIAPINE
     Indication: Product used for unknown indication
     Dosage: 100 MILLIGRAM, ONCE A DAY
     Route: 065
  6. PHENOLPHTHALEIN [Interacting]
     Active Substance: PHENOLPHTHALEIN
     Indication: Weight decreased
     Dosage: UNK
     Route: 048
  7. CHLORDIAZEPOXIDE [Interacting]
     Active Substance: CHLORDIAZEPOXIDE
     Indication: Weight decreased
     Dosage: UNK
     Route: 048
  8. HERBALS [Interacting]
     Active Substance: HERBALS
     Indication: Weight decreased
     Dosage: UNK
     Route: 048
  9. HERBALS [Interacting]
     Active Substance: HERBALS
     Indication: Weight decreased
     Dosage: UNK
     Route: 048
  10. FUROSEMIDE [Interacting]
     Active Substance: FUROSEMIDE
     Indication: Weight decreased
     Dosage: UNK
     Route: 048
  11. CANDESARTAN [Concomitant]
     Active Substance: CANDESARTAN
     Indication: Product used for unknown indication
     Dosage: 8 MILLIGRAM, ONCE A DAY
     Route: 065
  12. AMLODIPINE [Concomitant]
     Active Substance: AMLODIPINE BESYLATE
     Indication: Product used for unknown indication
     Dosage: 5 MILLIGRAM, ONCE A DAY
     Route: 065
  13. LEVOTHYROXINE [Concomitant]
     Active Substance: LEVOTHYROXINE\LEVOTHYROXINE SODIUM
     Indication: Product used for unknown indication
     Dosage: 0.137 MILLIGRAM
     Route: 065
  14. METFORMIN [Concomitant]
     Active Substance: METFORMIN HYDROCHLORIDE
     Indication: Weight decreased
     Route: 048
  15. METFORMIN [Concomitant]
     Active Substance: METFORMIN HYDROCHLORIDE
     Indication: Product used for unknown indication
     Dosage: 700 MILLIGRAM, ONCE A DAY
     Route: 065
  16. ASPIRIN [Concomitant]
     Active Substance: ASPIRIN
     Indication: Product used for unknown indication
     Dosage: 100 MILLIGRAM, ONCE A DAY
     Route: 065
  17. LIRAGLUTIDE [Concomitant]
     Active Substance: LIRAGLUTIDE
     Indication: Product used for unknown indication
     Dosage: 0.6 MILLIGRAM, ONCE A DAY
     Route: 065

REACTIONS (5)
  - Acute kidney injury [Recovering/Resolving]
  - Rhabdomyolysis [Recovering/Resolving]
  - Encephalopathy [Recovered/Resolved]
  - Hypovolaemia [Recovered/Resolved]
  - Drug interaction [Recovered/Resolved]
